FAERS Safety Report 16385399 (Version 1)
Quarter: 2019Q2

REPORT INFORMATION
  Report Type: Spontaneous
  Country: DE (occurrence: DE)
  Receive Date: 20190603
  Receipt Date: 20190603
  Transmission Date: 20190711
  Serious: Yes (Other)
  Sender: FDA-Public Use
  Company Number: PHHY2019DE127324

PATIENT
  Age: 35 Year
  Sex: Female

DRUGS (2)
  1. KETOTIFEN ^STADA^ [Concomitant]
     Indication: PRODUCT USED FOR UNKNOWN INDICATION
     Dosage: UNK
     Route: 065
  2. METFORMIN [Suspect]
     Active Substance: METFORMIN HYDROCHLORIDE
     Indication: HORMONE THERAPY
     Dosage: UNK
     Route: 065

REACTIONS (1)
  - Haemorrhage [Unknown]
